FAERS Safety Report 4674521-0 (Version None)
Quarter: 2005Q2

REPORT INFORMATION
  Report Type: 
  Country: None (occurrence: None)
  Receive Date: 20050526
  Receipt Date: 20050131
  Transmission Date: 20051028
  Serious: Yes (Hospitalization)
  Sender: FDA-Public Use
  Company Number: US-MERCK-0502USA00076

PATIENT
  Age: 48 Year
  Sex: Male
  Weight: 100 kg

DRUGS (11)
  1. MAXZIDE [Concomitant]
     Indication: HYPERTENSION
     Route: 065
     Dates: start: 19960101
  2. MAXZIDE [Concomitant]
     Indication: FLUID RETENTION
     Route: 065
     Dates: start: 19960101
  3. ACCUPRIL [Concomitant]
     Indication: HYPERTENSION
     Route: 065
     Dates: start: 20010101, end: 20011110
  4. TOPROL-XL [Concomitant]
     Indication: CORONARY ARTERY DISEASE
     Route: 065
     Dates: start: 20010101
  5. ASPIRIN [Concomitant]
     Route: 065
     Dates: start: 19961201
  6. LIPITOR [Concomitant]
     Route: 065
     Dates: start: 19960201
  7. METOPROLOL [Concomitant]
     Route: 065
     Dates: start: 19961108, end: 20011110
  8. VIOXX [Suspect]
     Indication: BACK PAIN
     Route: 048
     Dates: start: 20000711, end: 20011206
  9. VIOXX [Suspect]
     Indication: ARTHRITIS
     Route: 048
     Dates: start: 20000711, end: 20011206
  10. NORVASC [Concomitant]
     Route: 065
     Dates: start: 20010101
  11. DIURETIC (UNSPECIFIED) [Concomitant]
     Route: 065
     Dates: start: 19961201

REACTIONS (6)
  - ACUTE MYOCARDIAL INFARCTION [None]
  - ANGINA UNSTABLE [None]
  - DEPRESSION [None]
  - DYSPEPSIA [None]
  - HEART RATE IRREGULAR [None]
  - MYOCARDIAL INFARCTION [None]
